FAERS Safety Report 10843610 (Version 1)
Quarter: 2015Q1

REPORT INFORMATION
  Report Type: Report from Study
  Country: US (occurrence: US)
  Receive Date: 20150220
  Receipt Date: 20150220
  Transmission Date: 20150721
  Serious: No
  Sender: FDA-Public Use
  Company Number: US-ABBVIE-14P-163-1270185-00

PATIENT
  Age: 71 Year
  Sex: Female

DRUGS (16)
  1. MONTELUKAST [Concomitant]
     Active Substance: MONTELUKAST SODIUM
     Indication: PROPHYLAXIS
  2. CODEINE SULFATE. [Concomitant]
     Active Substance: CODEINE SULFATE
     Indication: DIARRHOEA
     Dosage: AT BEDTIME
  3. PEPERMINT OIL [Concomitant]
     Indication: GASTRIC DISORDER
  4. BOTOX [Concomitant]
     Active Substance: ONABOTULINUMTOXINA
     Indication: ANAL FISSURE
  5. SHAKLEE VITA VIT K [Concomitant]
     Indication: PRODUCT USED FOR UNKNOWN INDICATION
  6. MONTELUKAST [Concomitant]
     Active Substance: MONTELUKAST SODIUM
     Indication: URTICARIA
  7. ATROP [Concomitant]
     Indication: DIARRHOEA
     Dosage: 2.5/100.25
  8. FOLIC ACID. [Concomitant]
     Active Substance: FOLIC ACID
     Indication: PRODUCT USED FOR UNKNOWN INDICATION
  9. BUDESONIDE. [Concomitant]
     Active Substance: BUDESONIDE
     Indication: CROHN^S DISEASE
  10. KLOR-CON [Concomitant]
     Active Substance: POTASSIUM CHLORIDE
     Indication: ELECTROLYTE SUBSTITUTION THERAPY
  11. VITAMIN B12 [Concomitant]
     Active Substance: CYANOCOBALAMIN
     Indication: SHORT-BOWEL SYNDROME
     Route: 058
  12. HUMIRA [Suspect]
     Active Substance: ADALIMUMAB
     Indication: CROHN^S DISEASE
     Dates: start: 20140620
  13. WELCHOL [Concomitant]
     Active Substance: COLESEVELAM HYDROCHLORIDE
     Indication: BILE OUTPUT ABNORMAL
  14. BENEFIBER [Concomitant]
     Active Substance: STARCH, WHEAT
     Indication: PRODUCT USED FOR UNKNOWN INDICATION
  15. LISINOPRIL. [Concomitant]
     Active Substance: LISINOPRIL
     Indication: HYPERTENSION
  16. VITAMIN D [Concomitant]
     Active Substance: CHOLECALCIFEROL
     Indication: PRODUCT USED FOR UNKNOWN INDICATION

REACTIONS (5)
  - Anorectal swelling [Not Recovered/Not Resolved]
  - Rectal fissure [Not Recovered/Not Resolved]
  - Rectal spasm [Not Recovered/Not Resolved]
  - Muscle spasms [Unknown]
  - Proctalgia [Not Recovered/Not Resolved]

NARRATIVE: CASE EVENT DATE: 20140620
